FAERS Safety Report 4413209-8 (Version None)
Quarter: 2004Q3

REPORT INFORMATION
  Report Type: 
  Country: None (occurrence: None)
  Receive Date: 20040730
  Receipt Date: 20040730
  Transmission Date: 20050211
  Serious: No
  Sender: FDA-Public Use
  Company Number: None

PATIENT
  Age: 51 Year
  Sex: Male

DRUGS (9)
  1. ZOSYN [Suspect]
  2. ASPIRIN [Suspect]
  3. LIBRIN [Concomitant]
  4. LOVENOX [Concomitant]
  5. LEVAQUIN [Concomitant]
  6. MAGNESIN [Concomitant]
  7. PROTONIX [Concomitant]
  8. NICOTINE [Concomitant]
  9. ASPIRIN [Concomitant]

REACTIONS (7)
  - AORTIC BYPASS [None]
  - CELLULITIS [None]
  - DIALYSIS [None]
  - GRAFT COMPLICATION [None]
  - NEPHRITIS INTERSTITIAL [None]
  - POST PROCEDURAL COMPLICATION [None]
  - RENAL FAILURE ACUTE [None]
